FAERS Safety Report 20456827 (Version 1)
Quarter: 2022Q1

REPORT INFORMATION
  Report Type: Spontaneous
  Country: US (occurrence: US)
  Receive Date: 20220210
  Receipt Date: 20220210
  Transmission Date: 20220423
  Serious: No
  Sender: FDA-Public Use
  Company Number: US-PERRIGO-21US000976

PATIENT
  Age: 62 Year
  Sex: Female
  Weight: 72.562 kg

DRUGS (3)
  1. CETIRIZINE HYDROCHLORIDE [Suspect]
     Active Substance: CETIRIZINE HYDROCHLORIDE
     Indication: Sneezing
     Dosage: 10 MG, QD, PRN
     Route: 048
     Dates: start: 202011, end: 20210115
  2. CETIRIZINE HYDROCHLORIDE [Suspect]
     Active Substance: CETIRIZINE HYDROCHLORIDE
     Indication: Seasonal allergy
     Dosage: 10 MG, BID
     Route: 048
     Dates: start: 20210116, end: 20210118
  3. TYLENOL                            /00020001/ [Concomitant]
     Indication: Headache
     Dosage: UNKNOWN, PRN
     Route: 065

REACTIONS (2)
  - Inappropriate schedule of product administration [Recovered/Resolved]
  - Drug ineffective [Unknown]

NARRATIVE: CASE EVENT DATE: 20201101
